FAERS Safety Report 6967500-1 (Version None)
Quarter: 2010Q3

REPORT INFORMATION
  Report Type: 
  Country: None (occurrence: None)
  Receive Date: 20100901
  Receipt Date: 20100821
  Transmission Date: 20110219
  Serious: Yes (Hospitalization)
  Sender: FDA-Public Use
  Company Number: WAES 1008USA01917

PATIENT
  Age: 78 Year
  Sex: Male

DRUGS (13)
  1. ZOCOR [Suspect]
     Dates: end: 20100701
  2. BLINDED THERAPY [Suspect]
     Indication: THROMBOSIS PROPHYLAXIS
     Dosage: 10MG, DAILY; PO, 162 MG, DAILY, PO; 162 MG, DAILY, PO
     Route: 048
     Dates: start: 20091007, end: 20100530
  3. BLINDED THERAPY [Suspect]
     Indication: THROMBOSIS PROPHYLAXIS
     Dosage: 10MG, DAILY; PO, 162 MG, DAILY, PO; 162 MG, DAILY, PO
     Route: 048
     Dates: start: 20091007, end: 20100530
  4. BLINDED THERAPY [Suspect]
     Indication: THROMBOSIS PROPHYLAXIS
     Dosage: 10MG, DAILY; PO, 162 MG, DAILY, PO; 162 MG, DAILY, PO
     Route: 048
     Dates: start: 20100602, end: 20100620
  5. BLINDED THERAPY [Suspect]
     Indication: THROMBOSIS PROPHYLAXIS
     Dosage: 10MG, DAILY; PO, 162 MG, DAILY, PO; 162 MG, DAILY, PO
     Route: 048
     Dates: start: 20100602, end: 20100720
  6. ALLOPURINOL [Concomitant]
  7. ATENOLOL [Concomitant]
  8. ENALAPRIL MALEATE [Concomitant]
  9. FUROSEMIDE [Concomitant]
  10. METFORMIN HCL [Concomitant]
  11. OMEPRAZOLE [Concomitant]
  12. PAROXETINE HCL [Concomitant]
  13. ZOLPIDEM TARTRATE [Concomitant]

REACTIONS (5)
  - CARDIAC FAILURE [None]
  - CHOLECYSTITIS [None]
  - CONDITION AGGRAVATED [None]
  - MYOPATHY [None]
  - PNEUMONIA [None]
